FAERS Safety Report 14208479 (Version 1)
Quarter: 2017Q4

REPORT INFORMATION
  Report Type: Spontaneous
  Country: FR (occurrence: FR)
  Receive Date: 20171121
  Receipt Date: 20171121
  Transmission Date: 20180321
  Serious: Yes (Other)
  Sender: FDA-Public Use
  Company Number: FR-MERCK KGAA-2034758

PATIENT
  Age: 38 Year
  Sex: Female

DRUGS (5)
  1. TEMERIT DUO [Concomitant]
     Active Substance: HYDROCHLOROTHIAZIDE\NEBIVOLOL HYDROCHLORIDE
     Route: 048
     Dates: start: 201606
  2. NOVOTHYROX [Suspect]
     Active Substance: LEVOTHYROXINE SODIUM
     Indication: THYROIDECTOMY
     Route: 048
     Dates: start: 201705
  3. TRAMADOL. [Concomitant]
     Active Substance: TRAMADOL
  4. SKENAN [Concomitant]
     Active Substance: MORPHINE SULFATE
     Dates: start: 201708
  5. EPITOMAX [Concomitant]
     Active Substance: TOPIRAMATE
     Route: 048

REACTIONS (20)
  - Memory impairment [Recovering/Resolving]
  - Disturbance in attention [Recovering/Resolving]
  - Diffuse alopecia [Recovering/Resolving]
  - Hot flush [Recovering/Resolving]
  - Blood thyroid stimulating hormone normal [Recovered/Resolved]
  - Irritability [Recovering/Resolving]
  - Depressed mood [Recovering/Resolving]
  - Decreased appetite [Recovering/Resolving]
  - Thirst [Recovering/Resolving]
  - Fatigue [Recovering/Resolving]
  - Weight decreased [Recovering/Resolving]
  - Insomnia [Recovering/Resolving]
  - Pruritus generalised [Recovering/Resolving]
  - Headache [Recovering/Resolving]
  - Vertigo [Recovering/Resolving]
  - Muscle spasms [Recovering/Resolving]
  - Formication [Recovering/Resolving]
  - Loss of libido [Recovering/Resolving]
  - Myalgia [Recovering/Resolving]
  - Diarrhoea [Recovering/Resolving]

NARRATIVE: CASE EVENT DATE: 2017
